FAERS Safety Report 5563174-5 (Version None)
Quarter: 2007Q4

REPORT INFORMATION
  Report Type: 
  Country: None (occurrence: None)
  Receive Date: 20071212
  Receipt Date: 20071212
  Transmission Date: 20080405
  Serious: Yes (Other)
  Sender: FDA-Public Use
  Company Number: None

PATIENT
  Sex: Female

DRUGS (11)
  1. REVLIMID [Suspect]
     Indication: MULTIPLE MYELOMA
     Dosage: 25MG  DAILY 21D/28D  PO
     Route: 048
  2. DEXAMETHASONE TAB [Concomitant]
  3. CHERATUSSIN AC SYRUP [Concomitant]
  4. AMITRIPTLINE HCL [Concomitant]
  5. FUROSEMIDE [Concomitant]
  6. K-TAB [Concomitant]
  7. OXYBUTYNIN CHLORIDE [Concomitant]
  8. CEFUROXIME [Concomitant]
  9. OXYDODONE [Concomitant]
  10. ATENOLOL [Concomitant]
  11. LACTULOSE [Concomitant]

REACTIONS (1)
  - LIVER FUNCTION TEST ABNORMAL [None]
